FAERS Safety Report 22180464 (Version 2)
Quarter: 2023Q2

REPORT INFORMATION
  Report Type: Spontaneous
  Country: JP (occurrence: JP)
  Receive Date: 20230406
  Receipt Date: 20230411
  Transmission Date: 20230721
  Serious: Yes (Hospitalization, Other)
  Sender: FDA-Public Use
  Company Number: JP-MSD-M2023-13261

PATIENT
  Age: 77 Year
  Sex: Female

DRUGS (4)
  1. KEYTRUDA [Suspect]
     Active Substance: PEMBROLIZUMAB
     Indication: Cervix carcinoma stage III
     Dosage: 200 MILLIGRAM, Q3W
     Route: 041
     Dates: start: 20230302, end: 20230302
  2. BEVACIZUMAB [Suspect]
     Active Substance: BEVACIZUMAB
     Dosage: UNK
     Route: 042
     Dates: start: 202302, end: 2023
  3. CARBOPLATIN [Concomitant]
     Active Substance: CARBOPLATIN
     Dosage: UNK
     Route: 042
     Dates: start: 202302, end: 2023
  4. PACLITAXEL [Concomitant]
     Active Substance: PACLITAXEL
     Dosage: UNK
     Route: 042
     Dates: start: 202302, end: 2023

REACTIONS (4)
  - Faeces discoloured [Recovering/Resolving]
  - Small intestinal haemorrhage [Unknown]
  - Anaemia [Recovering/Resolving]
  - Diarrhoea [Recovered/Resolved]

NARRATIVE: CASE EVENT DATE: 20230331
